FAERS Safety Report 6190642-8 (Version None)
Quarter: 2009Q2

REPORT INFORMATION
  Report Type: 
  Country: None (occurrence: None)
  Receive Date: 20090514
  Receipt Date: 20090508
  Transmission Date: 20091009
  Serious: Yes (Hospitalization, Other)
  Sender: FDA-Public Use
  Company Number: BE-ABBOTT-09P-013-0572124-00

PATIENT
  Sex: Female

DRUGS (8)
  1. HUMIRA [Suspect]
     Indication: RHEUMATOID ARTHRITIS
     Route: 058
     Dates: start: 20050201
  2. MEDROL [Concomitant]
     Indication: DRUG USE FOR UNKNOWN INDICATION
     Dates: start: 20070803
  3. STEOVIT D3 [Concomitant]
     Indication: DRUG USE FOR UNKNOWN INDICATION
  4. INDERAL [Concomitant]
     Indication: DRUG USE FOR UNKNOWN INDICATION
  5. BEFACT FORTE [Concomitant]
     Indication: DRUG USE FOR UNKNOWN INDICATION
  6. ACTONEL [Interacting]
     Indication: DRUG USE FOR UNKNOWN INDICATION
  7. LORAMET [Concomitant]
     Indication: DRUG USE FOR UNKNOWN INDICATION
  8. SERLAIN [Concomitant]
     Indication: DRUG USE FOR UNKNOWN INDICATION

REACTIONS (5)
  - ARTHRALGIA [None]
  - ARTHRITIS BACTERIAL [None]
  - DYSKINESIA [None]
  - JOINT DISLOCATION [None]
  - NEPHROLITHIASIS [None]
